FAERS Safety Report 21083161 (Version 1)
Quarter: 2022Q3

REPORT INFORMATION
  Report Type: Spontaneous
  Country: US (occurrence: None)
  Receive Date: 20220714
  Receipt Date: 20220714
  Transmission Date: 20221027
  Serious: Yes (Hospitalization)
  Sender: FDA-Public Use
  Company Number: None

PATIENT
  Sex: Female

DRUGS (1)
  1. TOBRAMYCIN [Suspect]
     Active Substance: TOBRAMYCIN
     Indication: Bronchiectasis
     Dosage: OTHER QUANTITY : 300 MG/5ML;?FREQUENCY : AS DIRECTED; INHALE THE CONTENTS OF 1 VIAL (5ML) VIA NEBULI
     Route: 055
     Dates: start: 20161215

REACTIONS (2)
  - Small intestinal obstruction [None]
  - Atrial fibrillation [None]
